FAERS Safety Report 13464495 (Version 1)
Quarter: 2017Q2

REPORT INFORMATION
  Report Type: Spontaneous
  Country: US (occurrence: US)
  Receive Date: 20170420
  Receipt Date: 20170420
  Transmission Date: 20170830
  Serious: No
  Sender: FDA-Public Use
  Company Number: US-ROCHE-676324

PATIENT
  Age: 24 Year
  Sex: Male
  Weight: 65.8 kg

DRUGS (1)
  1. ISOTRETINOIN [Suspect]
     Active Substance: ISOTRETINOIN
     Indication: ACNE
     Route: 048
     Dates: start: 200903, end: 200906

REACTIONS (4)
  - Unevaluable event [Recovered/Resolved]
  - Arthralgia [Recovered/Resolved]
  - Vision blurred [Recovered/Resolved]
  - Scar [Not Recovered/Not Resolved]

NARRATIVE: CASE EVENT DATE: 200906
